FAERS Safety Report 4968705-1 (Version None)
Quarter: 2006Q2

REPORT INFORMATION
  Report Type: 
  Country: None (occurrence: None)
  Receive Date: 20060411
  Receipt Date: 20060331
  Transmission Date: 20061013
  Serious: Yes (Hospitalization)
  Sender: FDA-Public Use
  Company Number: PHBS2006GB05003

PATIENT
  Age: 65 Year
  Sex: Female

DRUGS (5)
  1. DICLOFENAC SODIUM [Suspect]
     Dosage: 50 MG, TID
  2. HYDROCORTISONE [Suspect]
     Dosage: 50 MG, TID
  3. RANITIDINE [Suspect]
     Dosage: 150 MG, BID
  4. FOLIC ACID [Suspect]
     Dosage: 5 MG, QD
  5. METHOTREXATE [Suspect]
     Dosage: 7.5 MG, QW

REACTIONS (13)
  - ABDOMINAL PAIN LOWER [None]
  - ABDOMINAL SEPSIS [None]
  - COLONIC STENOSIS [None]
  - DIARRHOEA [None]
  - GASTROINTESTINAL DISORDER [None]
  - HYPERTENSION [None]
  - LARGE INTESTINE PERFORATION [None]
  - MUCOSAL ULCERATION [None]
  - MYELODYSPLASTIC SYNDROME [None]
  - ORAL SUBMUCOSAL FIBROSIS [None]
  - OSTEOPOROSIS [None]
  - PNEUMOPERITONEUM [None]
  - VOMITING [None]
